FAERS Safety Report 6892741-1 (Version None)
Quarter: 2010Q3

REPORT INFORMATION
  Report Type: 
  Country: None (occurrence: None)
  Receive Date: 20100731
  Receipt Date: 20080902
  Transmission Date: 20110219
  Serious: Yes (Other)
  Sender: FDA-Public Use
  Company Number: US-PFIZER INC-2008074557

PATIENT
  Sex: Female

DRUGS (2)
  1. NEURONTIN [Suspect]
     Indication: NEURALGIA
  2. LYRICA [Suspect]

REACTIONS (5)
  - DEPRESSION [None]
  - FEELING ABNORMAL [None]
  - PAIN [None]
  - PALPITATIONS [None]
  - SUICIDAL IDEATION [None]
